FAERS Safety Report 19227529 (Version 2)
Quarter: 2022Q3

REPORT INFORMATION
  Report Type: Spontaneous
  Country: PT (occurrence: PT)
  Receive Date: 20210506
  Receipt Date: 20220902
  Transmission Date: 20221027
  Serious: Yes (Other)
  Sender: FDA-Public Use
  Company Number: None

PATIENT
  Age: 73 Year
  Sex: Male

DRUGS (1)
  1. IMATINIB [Suspect]
     Active Substance: IMATINIB
     Indication: Myeloid leukaemia
     Dosage: 400 MG, QD, (1 COMPRIMIDO POR DIA)
     Route: 048
     Dates: start: 20210209

REACTIONS (2)
  - Throat irritation [Unknown]
  - Nausea [Unknown]

NARRATIVE: CASE EVENT DATE: 20210209
